FAERS Safety Report 8675904 (Version 3)
Quarter: 2013Q4

REPORT INFORMATION
  Report Type: Report from Study
  Country: BR (occurrence: BR)
  Receive Date: 20120720
  Receipt Date: 20131025
  Transmission Date: 20140711
  Serious: Yes (Hospitalization, Other)
  Sender: FDA-Public Use
  Company Number: PHHY2012BR016047

PATIENT
  Age: 75 Year
  Sex: Male
  Weight: 71 kg

DRUGS (7)
  1. XOLAIR [Suspect]
     Indication: ASTHMA
     Dosage: 1 AMPOULE
  2. XOLAIR [Suspect]
     Dosage: UNK, EVERY  15 DAYS
     Dates: start: 20131015
  3. FORASEQ [Concomitant]
     Indication: ASTHMA
     Dosage: 1 DF, BID
  4. BAMIFIX [Concomitant]
     Indication: DYSPNOEA
     Dosage: 1 DF, BID
  5. LOSARTAN [Concomitant]
     Indication: BLOOD PRESSURE ABNORMAL
     Dosage: 1 DF, UNK
  6. DISGREN [Concomitant]
     Indication: DYSPHONIA
     Dosage: 1 DF, BID
  7. MIFLONIDE [Concomitant]
     Indication: ASTHMA
     Dosage: UKN

REACTIONS (13)
  - Pneumonia [Recovering/Resolving]
  - Aspiration bronchial [Not Recovered/Not Resolved]
  - Cough [Not Recovered/Not Resolved]
  - Nasopharyngitis [Recovering/Resolving]
  - Asthma [Recovering/Resolving]
  - Dyspnoea [Not Recovered/Not Resolved]
  - Ischaemia [Not Recovered/Not Resolved]
  - Dysphagia [Not Recovered/Not Resolved]
  - Aphasia [Not Recovered/Not Resolved]
  - Amyotrophic lateral sclerosis [Not Recovered/Not Resolved]
  - Blood pressure increased [Recovering/Resolving]
  - Dysphonia [Not Recovered/Not Resolved]
  - Malaise [Recovering/Resolving]
